FAERS Safety Report 7919948-6 (Version None)
Quarter: 2011Q4

REPORT INFORMATION
  Report Type: 
  Country: None (occurrence: None)
  Receive Date: 20111115
  Receipt Date: 20111109
  Transmission Date: 20120403
  Serious: Yes (Death, Life-Threatening, Disabling, Other)
  Sender: FDA-Public Use
  Company Number: DSA_47706_2011

PATIENT
  Sex: Female
  Weight: 52.1637 kg

DRUGS (1)
  1. XENAZINE [Suspect]
     Indication: HUNTINGTON'S DISEASE
     Dosage: (25 MG TID ORAL)
     Route: 048
     Dates: start: 20100714

REACTIONS (2)
  - ASPIRATION [None]
  - DYSPHAGIA [None]
